FAERS Safety Report 13178202 (Version 1)
Quarter: 2017Q1

REPORT INFORMATION
  Report Type: Spontaneous
  Country: US (occurrence: US)
  Receive Date: 20170201
  Receipt Date: 20170201
  Transmission Date: 20170428
  Serious: Yes (Other)
  Sender: FDA-Public Use
  Company Number: None

PATIENT
  Age: 43 Year
  Sex: Male
  Weight: 81.72 kg

DRUGS (2)
  1. PAROXETINE CR 25 MG APOTEX [Suspect]
     Active Substance: PAROXETINE HYDROCHLORIDE
     Indication: ATTENTION DEFICIT/HYPERACTIVITY DISORDER
     Dosage: 25 MG ER Q24H PO
     Route: 048
     Dates: start: 20170128, end: 20170131
  2. PAROXETINE CR 25 MG APOTEX [Suspect]
     Active Substance: PAROXETINE HYDROCHLORIDE
     Indication: DEPRESSION
     Dosage: 25 MG ER Q24H PO
     Route: 048
     Dates: start: 20170128, end: 20170131

REACTIONS (6)
  - Nightmare [None]
  - Product quality issue [None]
  - Product substitution issue [None]
  - Feeling abnormal [None]
  - Nausea [None]
  - Drug ineffective [None]

NARRATIVE: CASE EVENT DATE: 20170131
